FAERS Safety Report 20968308 (Version 2)
Quarter: 2022Q3

REPORT INFORMATION
  Report Type: Spontaneous
  Country: US (occurrence: US)
  Receive Date: 20220616
  Receipt Date: 20220812
  Transmission Date: 20221027
  Serious: No
  Sender: FDA-Public Use
  Company Number: US-NOVARTISTESTPH-NVSC2022US137993

PATIENT
  Sex: Female

DRUGS (1)
  1. XIIDRA [Suspect]
     Active Substance: LIFITEGRAST
     Indication: Dry eye
     Dosage: 1 DRP, BID (BOTH EYE)
     Route: 065

REACTIONS (6)
  - Product container issue [Unknown]
  - Product use issue [Unknown]
  - Product use complaint [Unknown]
  - Drug delivery system issue [Unknown]
  - Incorrect dose administered [Unknown]
  - Arthritis [Unknown]
